FAERS Safety Report 13770963 (Version 1)
Quarter: 2017Q3

REPORT INFORMATION
  Report Type: Report from Study
  Country: MX (occurrence: MX)
  Receive Date: 20170720
  Receipt Date: 20170720
  Transmission Date: 20171127
  Serious: Yes (Hospitalization, Other)
  Sender: FDA-Public Use
  Company Number: MX-UCBSA-2017028030

PATIENT
  Age: 0 Year
  Sex: Male
  Weight: 7.6 kg

DRUGS (11)
  1. KEPPRA [Suspect]
     Active Substance: LEVETIRACETAM
     Indication: EPILEPSY
     Dosage: UNK
     Route: 042
     Dates: start: 201606, end: 2016
  2. KEPPRA [Suspect]
     Active Substance: LEVETIRACETAM
     Dosage: UNK
     Route: 042
     Dates: start: 20161225
  3. ESOMEPRAZOLE [Concomitant]
     Active Substance: ESOMEPRAZOLE
     Indication: GASTROOESOPHAGEAL REFLUX DISEASE
     Dosage: 2.5 MG, ONCE DAILY (QD), SINCE DISCHARGED FROM THE HOSPITAL
     Route: 048
  4. CISAPRIDE [Concomitant]
     Active Substance: CISAPRIDE
     Indication: GASTROOESOPHAGEAL REFLUX DISEASE
     Dosage: 7 KG MARK/ 8 HRS
     Route: 048
     Dates: start: 20160524
  5. VITAMIN D [Concomitant]
     Active Substance: CHOLECALCIFEROL
     Indication: PRODUCT USED FOR UNKNOWN INDICATION
     Dosage: 400 MG, ONCE DAILY (QD), SINCE DISCHARGED FROM THE HOSPITAL
     Route: 048
  6. LEVETIRACETAM. [Suspect]
     Active Substance: LEVETIRACETAM
     Indication: EPILEPSY
     Dosage: 0.5 ML, 2X/DAY (BID) (/ 12 HRS)
     Route: 048
     Dates: start: 201609, end: 2016
  7. LEVETIRACETAM. [Suspect]
     Active Substance: LEVETIRACETAM
     Dosage: 1 ML, 2X/DAY (BID) (/ 12HRS)
     Route: 048
     Dates: end: 2017
  8. SILDENAFIL. [Concomitant]
     Active Substance: SILDENAFIL
     Indication: BRONCHOPULMONARY DYSPLASIA
     Dosage: 2 MG, 2X/DAY (BID)
     Route: 048
     Dates: start: 201607
  9. BACLOFEN. [Concomitant]
     Active Substance: BACLOFEN
     Indication: MUSCLE RIGIDITY
     Dosage: 1.5 MG, ONCE DAILY (QD)
     Route: 048
     Dates: start: 201612
  10. FOLIC ACID. [Concomitant]
     Active Substance: FOLIC ACID
     Indication: PRODUCT USED FOR UNKNOWN INDICATION
     Dosage: 2 ML, ONCE DAILY (QD) SINCE DISCHARGED FROM THE HOSPITAL
     Route: 048
  11. SILDENAFIL. [Concomitant]
     Active Substance: SILDENAFIL
     Indication: PULMONARY HYPERTENSION

REACTIONS (4)
  - Intraventricular haemorrhage [Recovered/Resolved]
  - Apnoea [Unknown]
  - Gastrointestinal disorder [Recovered/Resolved]
  - Off label use [Unknown]

NARRATIVE: CASE EVENT DATE: 2016
